FAERS Safety Report 23049214 (Version 1)
Quarter: 2023Q4

REPORT INFORMATION
  Report Type: Spontaneous
  Country: US (occurrence: None)
  Receive Date: 20231006
  Receipt Date: 20231006
  Transmission Date: 20240110
  Serious: Yes (Hospitalization)
  Sender: FDA-Public Use
  Company Number: None

PATIENT
  Sex: Female

DRUGS (11)
  1. HUMIRA [Suspect]
     Active Substance: ADALIMUMAB
     Indication: Hidradenitis
     Dosage: OTHER QUANTITY : 40MG/0.4ML;?FREQUENCY : WEEKLY;?
     Route: 058
     Dates: start: 20211208
  2. ADDERALL XR [Concomitant]
     Active Substance: AMPHETAMINE ASPARTATE\AMPHETAMINE SULFATE\DEXTROAMPHETAMINE SACCHARATE\DEXTROAMPHETAMINE SULFATE
  3. ALBUTEROL AER HFA [Concomitant]
  4. ATENOLOL [Concomitant]
     Active Substance: ATENOLOL
  5. EFFEXOR XR [Concomitant]
     Active Substance: VENLAFAXINE HYDROCHLORIDE
  6. FLONASE ALGY SPR [Concomitant]
  7. MINOCYCLINE [Concomitant]
     Active Substance: MINOCYCLINE HYDROCHLORIDE
  8. MOTRIN IB [Concomitant]
     Active Substance: IBUPROFEN
  9. TYLENOL [Concomitant]
     Active Substance: ACETAMINOPHEN
  10. ZONEGRAN [Concomitant]
     Active Substance: ZONISAMIDE
  11. ZYRTEC ALLGY [Concomitant]

REACTIONS (2)
  - Condition aggravated [None]
  - Hidradenitis [None]
